FAERS Safety Report 12421946 (Version 3)
Quarter: 2018Q4

REPORT INFORMATION
  Report Type: Report from Study
  Country: US (occurrence: US)
  Receive Date: 20160531
  Receipt Date: 20181227
  Transmission Date: 20190204
  Serious: Yes (Hospitalization, Other)
  Sender: FDA-Public Use
  Company Number: US-SEATTLE GENETICS-2016SGN00823

PATIENT
  Age: 68 Year
  Sex: Male
  Weight: 65.8 kg

DRUGS (24)
  1. BRENTUXIMAB VEDOTIN [Suspect]
     Active Substance: BRENTUXIMAB VEDOTIN
     Indication: DIFFUSE LARGE B-CELL LYMPHOMA
     Dosage: 1.8 MG/KG, Q21D
     Route: 042
     Dates: start: 20151201, end: 20160506
  2. BRENTUXIMAB VEDOTIN [Suspect]
     Active Substance: BRENTUXIMAB VEDOTIN
     Indication: POST TRANSPLANT LYMPHOPROLIFERATIVE DISORDER
  3. CITRACAL + D                       /01438101/ [Concomitant]
     Dosage: 315-200 MG-UNIT
     Route: 048
  4. HEXAVITAMIN                        /00067501/ [Concomitant]
     Dosage: 0.25 MG, UNK
     Route: 048
  5. VITAMIN D2 [Concomitant]
     Active Substance: ERGOCALCIFEROL
     Dosage: 1 DF, QWEEK (50,000 UNIT CAPSULE)
     Route: 048
  6. PROGRAF [Concomitant]
     Active Substance: TACROLIMUS\TACROLIMUS ANHYDROUS
     Dosage: 2 MG (4 CAPSULES) IN THE AM AND 1.5 MG (3 CAPSULES) IN THE EVENING
     Route: 048
  7. VALCYTE [Concomitant]
     Active Substance: VALGANCICLOVIR HYDROCHLORIDE
     Dosage: 900 MG, UNK
     Route: 048
  8. MEPRON                             /00049601/ [Concomitant]
     Active Substance: METHYLPREDNISOLONE
     Dosage: 10 ML, UNK (150 MG/ML)
     Route: 048
  9. NEORAL [Concomitant]
     Active Substance: CYCLOSPORINE
     Dosage: 100 MG, UNK
     Route: 048
  10. BRETHINE [Concomitant]
     Active Substance: TERBUTALINE SULFATE
     Dosage: 5 MG, UNK
     Route: 048
  11. RITUXIMAB. [Suspect]
     Active Substance: RITUXIMAB
     Indication: POST TRANSPLANT LYMPHOPROLIFERATIVE DISORDER
  12. NORVASC [Concomitant]
     Active Substance: AMLODIPINE BESYLATE
     Dosage: 10 MG, UNK
     Route: 048
  13. MAGNESIUM [Concomitant]
     Active Substance: MAGNESIUM
     Dosage: 84 MG, UNK
     Route: 048
  14. BACTRIM [Concomitant]
     Active Substance: SULFAMETHOXAZOLE\TRIMETHOPRIM
     Dosage: 1 UNK, UNK (400-80 MG)
     Route: 048
  15. RITUXIMAB. [Suspect]
     Active Substance: RITUXIMAB
     Indication: DIFFUSE LARGE B-CELL LYMPHOMA
     Dosage: 375 MG/M2, QCYCLE
     Route: 042
     Dates: start: 20151201, end: 20160418
  16. LEXAPRO [Concomitant]
     Active Substance: ESCITALOPRAM OXALATE
     Dosage: 20 MG, UNK
     Route: 048
  17. PEPCID [Concomitant]
     Active Substance: FAMOTIDINE
     Dosage: 20 MG, UNK
     Route: 048
  18. VIRT VITE [Concomitant]
     Dosage: 1 UNK, UNK (2.5-25-1 MG)
     Route: 048
  19. PROTONIX                           /00661201/ [Concomitant]
     Active Substance: OMEPRAZOLE
     Dosage: 40 MG, UNK
     Route: 048
  20. PREDNISONE. [Concomitant]
     Active Substance: PREDNISONE
     Dosage: 5 MG, UNK
     Route: 048
  21. GLUCOPHAGE [Concomitant]
     Active Substance: METFORMIN HYDROCHLORIDE
     Dosage: 500 MG, UNK
     Route: 048
  22. ASPIRIN                            /00002701/ [Concomitant]
     Active Substance: ASPIRIN
     Dosage: 81 MG, UNK
     Route: 048
  23. CLONAZEPAM. [Concomitant]
     Active Substance: CLONAZEPAM
     Dosage: 0.25 MG, UNK
     Route: 048
  24. SYNTHROID [Concomitant]
     Active Substance: LEVOTHYROXINE SODIUM
     Dosage: 88 ?G, UNK
     Route: 048

REACTIONS (8)
  - Thrombocytopenia [Unknown]
  - Kidney transplant rejection [Unknown]
  - Hypovolaemia [Unknown]
  - Cytomegalovirus infection [Unknown]
  - Pancytopenia [Unknown]
  - Pyrexia [Unknown]
  - Acute kidney injury [Recovered/Resolved]
  - Leukopenia [Unknown]

NARRATIVE: CASE EVENT DATE: 20160525
